FAERS Safety Report 18086315 (Version 1)
Quarter: 2020Q3

REPORT INFORMATION
  Report Type: Report from Study
  Country: None (occurrence: BR)
  Receive Date: 20200728
  Receipt Date: 20200728
  Transmission Date: 20201103
  Serious: Yes (Hospitalization)
  Sender: FDA-Public Use
  Company Number: BR-ABBVIE-20P-020-3499612-00

PATIENT
  Sex: Female

DRUGS (3)
  1. CREON [Suspect]
     Active Substance: PANCRELIPASE AMYLASE\PANCRELIPASE LIPASE\PANCRELIPASE PROTEASE
     Indication: PANCREATIC FAILURE
     Dosage: USES SINCE SHE WAS DIAGNOSED (1 YEAR AND 7 MONTHS OLD)?10.000
     Route: 048
  2. GLUCERNA [Suspect]
     Active Substance: AMINO ACIDS\DEXTROSE\ELECTROLYTES NOS\SOYBEAN OIL\VITAMINS
     Indication: SUPPLEMENTATION THERAPY
     Dosage: 2 UNITS; VANILLA FLAVOR; ADMINISTERED AT 10H+22H; LIQUID (READY TO DRINK)
     Route: 065
     Dates: start: 2019
  3. GLUCERNA [Suspect]
     Active Substance: AMINO ACIDS\DEXTROSE\ELECTROLYTES NOS\SOYBEAN OIL\VITAMINS
     Indication: WEIGHT INCREASED
     Dosage: STARTED DURING LATEST HOSPITALIZATION. LIQUID (READY TO DRINK).
     Route: 065
     Dates: start: 2020

REACTIONS (5)
  - Weight decreased [Recovering/Resolving]
  - Vision blurred [Recovered/Resolved]
  - Diabetes mellitus [Recovering/Resolving]
  - Bacterial disease carrier [Recovering/Resolving]
  - Bacterial disease carrier [Recovered/Resolved]

NARRATIVE: CASE EVENT DATE: 201912
